FAERS Safety Report 21197334 (Version 2)
Quarter: 2023Q1

REPORT INFORMATION
  Report Type: Spontaneous
  Country: US (occurrence: US)
  Receive Date: 20220810
  Receipt Date: 20230216
  Transmission Date: 20230417
  Serious: No
  Sender: FDA-Public Use
  Company Number: US-SA-SAC20220804002330

PATIENT
  Age: 57 Year
  Sex: Male

DRUGS (4)
  1. CAPRELSA [Suspect]
     Active Substance: VANDETANIB
     Indication: Thyroid cancer
     Dosage: 300 MG, QD
     Route: 048
     Dates: start: 20200224
  2. ROSUVASTATIN CALCIUM [Suspect]
     Active Substance: ROSUVASTATIN CALCIUM
     Dosage: UNK
  3. CALQUENCE [Suspect]
     Active Substance: ACALABRUTINIB
     Dosage: UNK
  4. CHLORTHALIDONE [Concomitant]
     Active Substance: CHLORTHALIDONE
     Dosage: UNK

REACTIONS (8)
  - Myalgia [Unknown]
  - Pain in extremity [Unknown]
  - Skin disorder [Unknown]
  - Acne [Unknown]
  - Condition aggravated [Unknown]
  - Photosensitivity reaction [Unknown]
  - Condition aggravated [Unknown]
  - Hypertension [Unknown]
